FAERS Safety Report 4880152-X (Version None)
Quarter: 2005Q4

REPORT INFORMATION
  Report Type: 
  Country: None (occurrence: None)
  Receive Date: 20051223
  Receipt Date: 20051014
  Transmission Date: 20060501
  Serious: No
  Sender: FDA-Public Use
  Company Number: 05P-163-0314187-00

PATIENT
  Age: 48 Year
  Sex: Male
  Weight: 90.7194 kg

DRUGS (8)
  1. HUMIRA [Suspect]
     Indication: RHEUMATOID ARTHRITIS
     Dosage: 40 MG, 1 IN 2 WK, SUBCUTANEOUS
     Route: 058
     Dates: start: 20051014
  2. DEXTROPROPOXYPHENE HYDROCHLORIDE [Concomitant]
  3. BACTRIM [Concomitant]
  4. PREDNISONE [Concomitant]
  5. FAMOTIDINE [Concomitant]
  6. LEFLUNOMIDE [Concomitant]
  7. SERETIDE MITE [Concomitant]
  8. SALBUTAMOL [Concomitant]

REACTIONS (3)
  - INJECTION SITE BRUISING [None]
  - INJECTION SITE COLDNESS [None]
  - UNEVALUABLE EVENT [None]
